FAERS Safety Report 13622204 (Version 1)
Quarter: 2017Q2

REPORT INFORMATION
  Report Type: Spontaneous
  Country: US (occurrence: US)
  Receive Date: 20170607
  Receipt Date: 20170607
  Transmission Date: 20170830
  Serious: No
  Sender: FDA-Public Use
  Company Number: US-ROCHE-1873175

PATIENT
  Sex: Female
  Weight: 70.37 kg

DRUGS (14)
  1. KLONOPIN [Suspect]
     Active Substance: CLONAZEPAM
     Indication: ANXIETY
     Dosage: AT BEDTIME
     Route: 065
  2. AMBIEN [Concomitant]
     Active Substance: ZOLPIDEM TARTRATE
     Dosage: PRN
     Route: 065
  3. LAMICTAL [Concomitant]
     Active Substance: LAMOTRIGINE
     Route: 065
     Dates: start: 20150810
  4. CYMBALTA [Concomitant]
     Active Substance: DULOXETINE HYDROCHLORIDE
     Route: 065
     Dates: end: 2015
  5. GABAPENTIN. [Concomitant]
     Active Substance: GABAPENTIN
     Indication: HYPERSENSITIVITY
  6. KLONOPIN [Suspect]
     Active Substance: CLONAZEPAM
     Indication: INSOMNIA
  7. GABAPENTIN. [Concomitant]
     Active Substance: GABAPENTIN
     Indication: FIBROMYALGIA
  8. LEXAPRO [Concomitant]
     Active Substance: ESCITALOPRAM OXALATE
     Indication: ANXIETY
  9. LAMICTAL [Concomitant]
     Active Substance: LAMOTRIGINE
     Indication: BIPOLAR DISORDER
     Route: 065
  10. FLU SHOT (UNK INGREDIENTS) [Concomitant]
     Route: 065
     Dates: start: 201411
  11. GABAPENTIN. [Concomitant]
     Active Substance: GABAPENTIN
     Indication: NEUROLOGICAL SYMPTOM
     Dosage: 200MG,300MG TO 600 AND WAS MAXED OUT AT 800MG A DAY DOSE
     Route: 065
     Dates: start: 201411, end: 2015
  12. DEPAKOTE [Concomitant]
     Active Substance: DIVALPROEX SODIUM
  13. LEXAPRO [Concomitant]
     Active Substance: ESCITALOPRAM OXALATE
     Indication: DEPRESSION
     Route: 065
  14. PREDNISONE. [Concomitant]
     Active Substance: PREDNISONE
     Dosage: FOR 5 TO  7DAYS  LATER THAT 60 MG
     Route: 065
     Dates: start: 201412

REACTIONS (4)
  - Weight increased [Recovered/Resolved]
  - Sedation [Recovered/Resolved]
  - Disturbance in attention [Recovered/Resolved]
  - Therapeutic product ineffective [Unknown]

NARRATIVE: CASE EVENT DATE: 2014
